FAERS Safety Report 8048468-6 (Version None)
Quarter: 2012Q1

REPORT INFORMATION
  Report Type: 
  Country: None (occurrence: None)
  Receive Date: 20120117
  Receipt Date: 20120111
  Transmission Date: 20120608
  Serious: No
  Sender: FDA-Public Use
  Company Number: US-PFIZER INC-2012009591

PATIENT

DRUGS (1)
  1. PRISTIQ [Suspect]
     Dosage: UNK

REACTIONS (1)
  - PARAESTHESIA [None]
